FAERS Safety Report 10391903 (Version 1)
Quarter: 2014Q3

REPORT INFORMATION
  Report Type: Spontaneous
  Country: FR (occurrence: FR)
  Receive Date: 20140819
  Receipt Date: 20140819
  Transmission Date: 20150326
  Serious: Yes (Hospitalization)
  Sender: FDA-Public Use
  Company Number: PHHY2014FR100014

PATIENT
  Age: 53 Year
  Sex: Female

DRUGS (6)
  1. INIPOMP [Concomitant]
     Active Substance: PANTOPRAZOLE SODIUM
     Dosage: UNK UKN, UNK
  2. VOLTARENE [Suspect]
     Active Substance: DICLOFENAC SODIUM
     Dosage: 1 DF, DAILY
     Route: 048
  3. FEMSEVEN//ESTRADIOL [Suspect]
     Active Substance: ESTRADIOL
     Indication: MENOPAUSE
     Dosage: 50 UG/7UG/24H
     Route: 062
  4. SEROPRAM [Concomitant]
     Active Substance: CITALOPRAM HYDROBROMIDE
     Dosage: 1 DF, DAILY
  5. NOCTAMIDE [Concomitant]
     Active Substance: LORMETAZEPAM
     Dosage: 1 MG, QD
  6. LEXOMIL [Concomitant]
     Active Substance: BROMAZEPAM
     Dosage: 0.25 OR 0.5 DF DAILY

REACTIONS (1)
  - Ischaemic stroke [Recovered/Resolved]

NARRATIVE: CASE EVENT DATE: 20140711
